FAERS Safety Report 12950123 (Version 1)
Quarter: 2016Q4

REPORT INFORMATION
  Report Type: Spontaneous
  Country: US (occurrence: US)
  Receive Date: 20161116
  Receipt Date: 20161116
  Transmission Date: 20170207
  Serious: Yes (Other)
  Sender: FDA-Public Use
  Company Number: None

PATIENT
  Age: 25 Year
  Sex: Female
  Weight: 46.31 kg

DRUGS (14)
  1. COREG [Concomitant]
     Active Substance: CARVEDILOL
  2. FLUDROCORTISONE [Concomitant]
     Active Substance: FLUDROCORTISONE
  3. MORPHINE [Concomitant]
     Active Substance: MORPHINE
  4. OMEPRAZOLE. [Concomitant]
     Active Substance: OMEPRAZOLE
  5. DIPRAZOLAM [Concomitant]
  6. FLONASE [Concomitant]
     Active Substance: FLUTICASONE PROPIONATE
  7. LATUDA [Concomitant]
     Active Substance: LURASIDONE HYDROCHLORIDE
  8. ZANAFLEX [Concomitant]
     Active Substance: TIZANIDINE HYDROCHLORIDE
  9. OXYCODONE [Concomitant]
     Active Substance: OXYCODONE
  10. IRON [Concomitant]
     Active Substance: IRON
  11. ORTHO EVRA [Suspect]
     Active Substance: ETHINYL ESTRADIOL\NORELGESTROMIN
     Indication: PRODUCT USED FOR UNKNOWN INDICATION
  12. MIDODRINE [Concomitant]
     Active Substance: MIDODRINE
  13. XULANE [Suspect]
     Active Substance: ETHINYL ESTRADIOL\NORELGESTROMIN
     Indication: CONTRACEPTION
     Dosage: 3 DF, 1 PATCH EVERY WK FOR 3 WEEKS, ON SKIN
     Route: 061
     Dates: start: 20160914, end: 20160917
  14. LINZESS [Concomitant]
     Active Substance: LINACLOTIDE

REACTIONS (5)
  - Abortion spontaneous [None]
  - Maternal exposure before pregnancy [None]
  - Vaginal haemorrhage [None]
  - Application site rash [None]
  - Product substitution issue [None]
